FAERS Safety Report 16329461 (Version 2)
Quarter: 2019Q4

REPORT INFORMATION
  Report Type: Spontaneous
  Country: FR (occurrence: FR)
  Receive Date: 20190520
  Receipt Date: 20191226
  Transmission Date: 20200122
  Serious: Yes (Death, Life-Threatening, Other)
  Sender: FDA-Public Use
  Company Number: FR-LUPIN PHARMACEUTICALS INC.-2019-02922

PATIENT
  Age: 35 Year
  Sex: Male

DRUGS (3)
  1. MIDAZOLAM [Concomitant]
     Active Substance: MIDAZOLAM HYDROCHLORIDE
     Indication: PAIN
     Dosage: UNK (DELIVERED THROUGH TWO PUMPS)
     Route: 065
  2. OXYCODONE [Suspect]
     Active Substance: OXYCODONE
     Dosage: UNK (DELIVERED THROUGH TWO PUMPS)
     Route: 065
  3. OXYCODONE [Suspect]
     Active Substance: OXYCODONE
     Indication: PAIN
     Dosage: 180 MILLIGRAM, UNK (DELIVERED THROUGH TWO PUMPS)
     Route: 065

REACTIONS (3)
  - Device programming error [Fatal]
  - Toxicity to various agents [Fatal]
  - Accidental overdose [Fatal]
